FAERS Safety Report 7597543-9 (Version None)
Quarter: 2011Q3

REPORT INFORMATION
  Report Type: 
  Country: None (occurrence: None)
  Receive Date: 20110708
  Receipt Date: 20110701
  Transmission Date: 20111222
  Serious: Yes (Other)
  Sender: FDA-Public Use
  Company Number: PHHY2011JP58975

PATIENT
  Age: 75 Year
  Sex: Male

DRUGS (1)
  1. COMTAN [Suspect]
     Dosage: UNK
     Route: 048

REACTIONS (1)
  - URINARY RETENTION [None]
